FAERS Safety Report 23397905 (Version 1)
Quarter: 2024Q1

REPORT INFORMATION
  Report Type: Spontaneous
  Country: CA (occurrence: CA)
  Receive Date: 20240112
  Receipt Date: 20240112
  Transmission Date: 20240409
  Serious: Yes (Other)
  Sender: FDA-Public Use
  Company Number: CA-BAXTER-2024BAX010500

PATIENT
  Age: 23 Year
  Sex: Female

DRUGS (7)
  1. CEFAZOLIN [Suspect]
     Active Substance: CEFAZOLIN
     Indication: Product used for unknown indication
     Dosage: UNK
     Route: 065
  2. BUPIVACAINE [Suspect]
     Active Substance: BUPIVACAINE
     Indication: Spinal anaesthesia
     Dosage: 1.6 ML, DOSAGE FORM: SOLUTION BLOCK/ INFILTRATION
     Route: 065
  3. BETAMETHASONE [Suspect]
     Active Substance: BETAMETHASONE\BETAMETHASONE DIPROPIONATE
     Indication: Product used for unknown indication
     Dosage: UNK
     Route: 065
  4. FENTANYL [Suspect]
     Active Substance: FENTANYL\FENTANYL CITRATE
     Indication: Spinal anaesthesia
     Dosage: DOSAGE FORM: NOT SPECIFIED, 15 MICROGRAM
     Route: 065
  5. LIDOCAINE [Suspect]
     Active Substance: LIDOCAINE
     Indication: Skin reaction
     Dosage: 2 ML, DOSAGE FORM: OINTMENT TOPICAL
     Route: 065
  6. METOCLOPRAMIDE [Suspect]
     Active Substance: METOCLOPRAMIDE
     Indication: Product used for unknown indication
     Dosage: UNK
     Route: 065
  7. MORPHINE [Suspect]
     Active Substance: MORPHINE
     Indication: Spinal anaesthesia
     Dosage: DOSAGE FORM: NOT SPECIFIED, 100 MICROGRAMS
     Route: 065

REACTIONS (3)
  - Premature delivery [Unknown]
  - Maternal exposure during delivery [Unknown]
  - Maternal exposure during pregnancy [Unknown]
